FAERS Safety Report 14355933 (Version 2)
Quarter: 2018Q2

REPORT INFORMATION
  Report Type: Spontaneous
  Country: US (occurrence: US)
  Receive Date: 20180105
  Receipt Date: 20180413
  Transmission Date: 20180711
  Serious: No
  Sender: FDA-Public Use
  Company Number: US-ASTRAZENECA-2017SF33452

PATIENT
  Age: 54 Year
  Sex: Female
  Weight: 58.8 kg

DRUGS (6)
  1. ALBUTEROL. [Concomitant]
     Active Substance: ALBUTEROL
  2. PULMICORT FLEXHALER [Suspect]
     Active Substance: BUDESONIDE
     Indication: ASTHMA
     Route: 055
     Dates: start: 201708, end: 20171221
  3. SYMBICORT [Suspect]
     Active Substance: BUDESONIDE\FORMOTEROL FUMARATE DIHYDRATE
     Indication: ASTHMA
     Dosage: 160-4.5 TWO PUFFS TWICE A DAY
     Route: 055
     Dates: start: 20171222
  4. SYMBICORT [Suspect]
     Active Substance: BUDESONIDE\FORMOTEROL FUMARATE DIHYDRATE
     Indication: ASTHMA
     Dosage: 160-4.5 TWO PUFFS TWICE A DAY
     Route: 055
     Dates: start: 20170613, end: 20170817
  5. PROVENTIL [Concomitant]
     Active Substance: ALBUTEROL
     Indication: INHALATION THERAPY
     Dosage: AS REQUIRED
     Route: 055
  6. FLUTICASONE. [Concomitant]
     Active Substance: FLUTICASONE

REACTIONS (9)
  - Feeling jittery [Not Recovered/Not Resolved]
  - Aphonia [Not Recovered/Not Resolved]
  - Nervousness [Not Recovered/Not Resolved]
  - Mouth swelling [Recovered/Resolved]
  - Cough [Not Recovered/Not Resolved]
  - Drug ineffective [Unknown]
  - Stomatitis [Unknown]
  - Therapeutic response unexpected [Recovered/Resolved]
  - Oral disorder [Recovered/Resolved]

NARRATIVE: CASE EVENT DATE: 2017
